FAERS Safety Report 10165802 (Version 1)
Quarter: 2014Q2

REPORT INFORMATION
  Report Type: Spontaneous
  Country: US (occurrence: US)
  Receive Date: 20140510
  Receipt Date: 20140510
  Transmission Date: 20141212
  Serious: No
  Sender: FDA-Public Use
  Company Number: US-BRISTOL-MYERS SQUIBB COMPANY-19941103

PATIENT
  Age: 21 Year
  Sex: Female
  Weight: 80.72 kg

DRUGS (2)
  1. BYDUREON [Suspect]
     Indication: TYPE 1 DIABETES MELLITUS
     Dosage: 2ND INJ ON 12DEC13
     Dates: start: 20131205
  2. HUMALOG [Concomitant]

REACTIONS (1)
  - Rash pruritic [Recovered/Resolved]
